FAERS Safety Report 24143829 (Version 1)
Quarter: 2024Q3

REPORT INFORMATION
  Report Type: Spontaneous
  Country: US (occurrence: US)
  Receive Date: 20240727
  Receipt Date: 20240727
  Transmission Date: 20241016
  Serious: Yes (Hospitalization, Other)
  Sender: DR REDDYS
  Company Number: US-DRL-USA-LIT/USA/24/0010798

PATIENT
  Age: 69 Year
  Sex: Female

DRUGS (3)
  1. DOFETILIDE [Suspect]
     Active Substance: DOFETILIDE
     Indication: Atrial fibrillation
  2. PHENYLEPHRINE [Suspect]
     Active Substance: PHENYLEPHRINE HYDROCHLORIDE
     Indication: Hypotension
  3. SOTALOL [Concomitant]
     Active Substance: SOTALOL
     Indication: Atrial fibrillation

REACTIONS (2)
  - Drug ineffective [Unknown]
  - Condition aggravated [Unknown]
